FAERS Safety Report 13533914 (Version 1)
Quarter: 2017Q2

REPORT INFORMATION
  Report Type: Spontaneous
  Country: US (occurrence: US)
  Receive Date: 20170510
  Receipt Date: 20170510
  Transmission Date: 20170830
  Serious: No
  Sender: FDA-Public Use
  Company Number: US-SA-2017SA073077

PATIENT
  Age: 58 Year
  Sex: Female

DRUGS (1)
  1. XYZAL ALLERGY 24HR [Suspect]
     Active Substance: LEVOCETIRIZINE DIHYDROCHLORIDE
     Indication: HYPERSENSITIVITY
     Dosage: ONE DOSE @?8:30PM
     Route: 065
     Dates: start: 20170418

REACTIONS (5)
  - Insomnia [Unknown]
  - Somnolence [Unknown]
  - Drug ineffective [Unknown]
  - Chest discomfort [Unknown]
  - Headache [Unknown]
